FAERS Safety Report 6178922-3 (Version None)
Quarter: 2009Q2

REPORT INFORMATION
  Report Type: 
  Country: None (occurrence: None)
  Receive Date: 20090505
  Receipt Date: 20090428
  Transmission Date: 20091009
  Serious: Yes (Hospitalization)
  Sender: FDA-Public Use
  Company Number: US-BAYER-200918546NA

PATIENT
  Sex: Female

DRUGS (5)
  1. BETASERON [Suspect]
     Indication: DRUG USE FOR UNKNOWN INDICATION
     Dates: end: 20050805
  2. COPAXONE [Concomitant]
  3. TYSABRI [Concomitant]
     Dates: start: 20081001
  4. ARICEPT [Concomitant]
  5. LIPITOR [Concomitant]

REACTIONS (2)
  - ABASIA [None]
  - ANTIBODY TEST POSITIVE [None]
